FAERS Safety Report 8521712-4 (Version None)
Quarter: 2012Q3

REPORT INFORMATION
  Report Type: 
  Country: None (occurrence: None)
  Receive Date: 20120719
  Receipt Date: 20120716
  Transmission Date: 20120928
  Serious: Yes (Hospitalization)
  Sender: FDA-Public Use
  Company Number: PHHY2012FR061581

PATIENT
  Sex: Male

DRUGS (3)
  1. VOLTAREN [Suspect]
     Indication: SCIATICA
     Dosage: UNK
     Route: 048
     Dates: start: 20120601, end: 20120629
  2. ACETAMINOPHEN AND TRAMADOL HCL [Suspect]
     Indication: SCIATICA
     Dosage: UNK
     Route: 048
     Dates: start: 20120601, end: 20120629
  3. PROTON PUMP INHIBITORS [Concomitant]

REACTIONS (6)
  - ANAEMIA [None]
  - HYPOTENSION [None]
  - SYNCOPE [None]
  - ANGIODYSPLASIA [None]
  - RECTAL HAEMORRHAGE [None]
  - DIVERTICULUM INTESTINAL HAEMORRHAGIC [None]
